FAERS Safety Report 8391935-6 (Version None)
Quarter: 2012Q2

REPORT INFORMATION
  Report Type: 
  Country: None (occurrence: None)
  Receive Date: 20120529
  Receipt Date: 20120522
  Transmission Date: 20120825
  Serious: Yes (Hospitalization)
  Sender: FDA-Public Use
  Company Number: FR-GLAXOSMITHKLINE-B0803226A

PATIENT
  Sex: Female

DRUGS (4)
  1. AUGMENTIN '125' [Suspect]
     Indication: PRODUCT USED FOR UNKNOWN INDICATION
     Route: 048
     Dates: end: 20120321
  2. PENTOXIFYLLINE [Suspect]
     Indication: ATRIAL FIBRILLATION
     Dosage: 20MG UNKNOWN
     Route: 048
     Dates: end: 20120317
  3. ARIXTRA [Suspect]
     Indication: PHLEBITIS
     Route: 065
     Dates: start: 20120301, end: 20120301
  4. VASTAREL [Concomitant]
     Indication: PRODUCT USED FOR UNKNOWN INDICATION
     Route: 065

REACTIONS (1)
  - RECTAL HAEMORRHAGE [None]
